FAERS Safety Report 25108867 (Version 1)
Quarter: 2025Q1

REPORT INFORMATION
  Report Type: Report from Study
  Country: IT (occurrence: IT)
  Receive Date: 20250322
  Receipt Date: 20250322
  Transmission Date: 20250409
  Serious: Yes (Other)
  Sender: TEVA
  Company Number: None

PATIENT
  Age: 64 Year
  Sex: Female
  Weight: 55 kg

DRUGS (2)
  1. DOXORUBICIN [Suspect]
     Active Substance: DOXORUBICIN
     Indication: Ovarian cancer
     Dosage: 47.4 MILLIGRAM, Q3W
     Route: 042
     Dates: start: 20210601
  2. YONDELIS [Suspect]
     Active Substance: TRABECTEDIN
     Indication: Ovarian cancer
     Dosage: 1.74 MILLIGRAM, Q3W
     Route: 042
     Dates: start: 20210601

REACTIONS (1)
  - Thrombocytopenia [Recovered/Resolved]

NARRATIVE: CASE EVENT DATE: 20210617
